FAERS Safety Report 19465212 (Version 3)
Quarter: 2021Q3

REPORT INFORMATION
  Report Type: Spontaneous
  Country: JP (occurrence: JP)
  Receive Date: 20210624
  Receipt Date: 20210805
  Transmission Date: 20211014
  Serious: Yes (Other)
  Sender: FDA-Public Use
  Company Number: JP-009507513-2106JPN006042

PATIENT
  Age: 59 Year
  Sex: Male

DRUGS (2)
  1. GLACTIV [Suspect]
     Active Substance: SITAGLIPTIN
     Indication: TYPE 2 DIABETES MELLITUS
     Dosage: 100 MG, EVERYDAY
     Route: 048
     Dates: start: 20131202, end: 20210524
  2. GLACTIV [Suspect]
     Active Substance: SITAGLIPTIN
     Dosage: 100 MG, EVERYDAY
     Dates: start: 20210526, end: 20210614

REACTIONS (1)
  - Ileus [Recovered/Resolved]

NARRATIVE: CASE EVENT DATE: 20210615
